FAERS Safety Report 10334846 (Version 1)
Quarter: 2014Q3

REPORT INFORMATION
  Report Type: Report from Study
  Country: US (occurrence: US)
  Receive Date: 20140723
  Receipt Date: 20140723
  Transmission Date: 20150326
  Serious: Yes (Other)
  Sender: FDA-Public Use
  Company Number: US-ROCHE-1438308

PATIENT
  Age: 10 Year
  Sex: Female
  Weight: 31.66 kg

DRUGS (4)
  1. NUTROPIN AQ [Suspect]
     Active Substance: SOMATROPIN
     Route: 058
     Dates: start: 200802
  2. NUTROPIN AQ [Suspect]
     Active Substance: SOMATROPIN
     Indication: BODY HEIGHT BELOW NORMAL
     Dosage: DOSE INCREASED
     Route: 058
     Dates: start: 20140711
  3. OXANDRIN [Concomitant]
     Active Substance: OXANDROLONE
     Route: 048
  4. NUTROPIN AQ [Suspect]
     Active Substance: SOMATROPIN
     Indication: TURNER^S SYNDROME
     Route: 058
     Dates: end: 20140711

REACTIONS (4)
  - Scoliosis [Unknown]
  - Drug dose omission [Unknown]
  - Arthralgia [Unknown]
  - Goitre [Unknown]

NARRATIVE: CASE EVENT DATE: 20140411
